FAERS Safety Report 19314017 (Version 1)
Quarter: 2021Q2

REPORT INFORMATION
  Report Type: Spontaneous
  Country: SA (occurrence: SA)
  Receive Date: 20210527
  Receipt Date: 20210527
  Transmission Date: 20210717
  Serious: Yes (Other)
  Sender: FDA-Public Use
  Company Number: SA-LUPIN PHARMACEUTICALS INC.-2021-07996

PATIENT
  Age: 13 Year
  Sex: Male

DRUGS (1)
  1. DICLOFENAC SODIUM. [Suspect]
     Active Substance: DICLOFENAC SODIUM
     Indication: PRODUCT USED FOR UNKNOWN INDICATION
     Dosage: UNK (OVER THE COUNTER DRUG)
     Route: 048

REACTIONS (4)
  - Sleep disorder [Recovered/Resolved]
  - Erythema multiforme [Recovered/Resolved]
  - Oral disorder [Recovered/Resolved]
  - Dysphagia [Recovered/Resolved]
